FAERS Safety Report 18137357 (Version 2)
Quarter: 2021Q1

REPORT INFORMATION
  Report Type: Spontaneous
  Country: GR (occurrence: GR)
  Receive Date: 20200811
  Receipt Date: 20210303
  Transmission Date: 20210419
  Serious: Yes (Hospitalization, Other)
  Sender: FDA-Public Use
  Company Number: GR-BRISTOL-MYERS SQUIBB COMPANY-BMS-2020-064086

PATIENT
  Age: 72 Year
  Sex: Male

DRUGS (2)
  1. IPILIMUMAB [Suspect]
     Active Substance: IPILIMUMAB
     Indication: TRANSITIONAL CELL CARCINOMA METASTATIC
     Dosage: 3 MILLIGRAM/KILOGRAM, Q3WK
     Route: 065
     Dates: start: 201807, end: 201809
  2. NIVOLUMAB [Suspect]
     Active Substance: NIVOLUMAB
     Indication: TRANSITIONAL CELL CARCINOMA METASTATIC
     Dosage: 1 MILLIGRAM/KILOGRAM, Q3WK
     Route: 065
     Dates: start: 201807, end: 201809

REACTIONS (1)
  - Dermatomyositis [Unknown]
